FAERS Safety Report 9250419 (Version 1)
Quarter: 2013Q1

REPORT INFORMATION
  Report Type: Spontaneous
  Country: US (occurrence: None)
  Receive Date: 20130305
  Receipt Date: 20130305
  Transmission Date: 20140127
  Serious: Yes (Hospitalization)
  Sender: FDA-Public Use
  Company Number: 163-2188012040581

PATIENT
  Age: 85 Year
  Sex: Male

DRUGS (1)
  1. REVLIMID [Suspect]
     Indication: PLASMA CELL MYELOMA
     Dosage: 15 MG, DAILY FOR 14 DAYS ON 7DAYS OFF, PO
     Route: 048
     Dates: start: 20120208

REACTIONS (3)
  - Fall [None]
  - Oedema [None]
  - Pain [None]
